FAERS Safety Report 5472407-5 (Version None)
Quarter: 2007Q3

REPORT INFORMATION
  Report Type: 
  Country: None (occurrence: None)
  Receive Date: 20070926
  Receipt Date: 20070920
  Transmission Date: 20080115
  Serious: Yes (Death)
  Sender: FDA-Public Use
  Company Number: 2007-164512-NL

PATIENT
  Age: 33 Year
  Sex: Female

DRUGS (8)
  1. MIRTAZAPINE [Suspect]
     Dosage: 30 MG ORAL
     Route: 048
     Dates: start: 20060810, end: 20061001
  2. LORAZEPAM [Suspect]
     Dosage: 2 MG/5 MG/6 MG/ 4 MG ORAL
     Route: 048
     Dates: start: 20060810, end: 20060925
  3. LORAZEPAM [Suspect]
     Dosage: 2 MG/5 MG/6 MG/ 4 MG ORAL
     Route: 048
     Dates: start: 20060926, end: 20060926
  4. LORAZEPAM [Suspect]
     Dosage: 2 MG/5 MG/6 MG/ 4 MG ORAL
     Route: 048
     Dates: start: 20060927, end: 20060927
  5. LORAZEPAM [Suspect]
     Dosage: 2 MG/5 MG/6 MG/ 4 MG ORAL
     Route: 048
     Dates: start: 20060928, end: 20061001
  6. ZOLPIDEM TARTRATE [Suspect]
     Dosage: 10 MG ORAL
     Route: 048
     Dates: start: 20060922, end: 20061001
  7. VENLAFAXIINE HCL [Suspect]
     Dosage: 37.5 MG/75 MG ORAL
     Route: 048
     Dates: start: 20060927, end: 20060927
  8. VENLAFAXIINE HCL [Suspect]
     Dosage: 37.5 MG/75 MG ORAL
     Route: 048
     Dates: start: 20060928, end: 20061001

REACTIONS (2)
  - ASPHYXIA [None]
  - COMPLETED SUICIDE [None]
